FAERS Safety Report 20946970 (Version 1)
Quarter: 2022Q2

REPORT INFORMATION
  Report Type: Report from Study
  Country: GB (occurrence: None)
  Receive Date: 20220610
  Receipt Date: 20220610
  Transmission Date: 20220720
  Serious: Yes (Hospitalization)
  Sender: FDA-Public Use
  Company Number: None

PATIENT

DRUGS (31)
  1. TRASTUZUMAB [Suspect]
     Active Substance: TRASTUZUMAB
     Indication: Breast cancer
     Dosage: 714 MG, EVERY 3 WEEKS
     Route: 042
     Dates: start: 20130606
  2. TRASTUZUMAB [Suspect]
     Active Substance: TRASTUZUMAB
     Dosage: 861 MG, EVERY 3 WEEK, LAST DOSE PRIOR TO FIRST SAE: 16/MAY/2013 LOADING DOSE ON 27/JUN/2013
     Route: 041
     Dates: start: 20130516
  3. TRASTUZUMAB [Suspect]
     Active Substance: TRASTUZUMAB
     Dosage: 861 MG, EVERY 3 WEEKS
     Route: 042
     Dates: start: 20130711
  4. PACLITAXEL [Suspect]
     Active Substance: PACLITAXEL
     Indication: Breast cancer
     Dosage: 174 MG, EVERY 1 WEEK, ON 12/JUN/2013, SHE RECEIVED TRASTUZUMAB PRIOR TO EVENT. ON?19/JUN/2013,
     Route: 042
     Dates: start: 20130522
  5. PACLITAXEL [Suspect]
     Active Substance: PACLITAXEL
     Route: 065
  6. PACLITAXEL [Suspect]
     Active Substance: PACLITAXEL
     Route: 042
     Dates: start: 20130711
  7. DEXAMETHASONE [Concomitant]
     Active Substance: DEXAMETHASONE
     Dosage: UNK
     Dates: start: 20130521, end: 20130524
  8. DEXAMETHASONE [Concomitant]
     Active Substance: DEXAMETHASONE
     Dosage: 1 MG DAILY
     Dates: start: 20130511, end: 20130517
  9. DEXAMETHASONE [Concomitant]
     Active Substance: DEXAMETHASONE
     Dosage: UNK
     Dates: start: 20130525, end: 20130612
  10. DEXAMETHASONE [Concomitant]
     Active Substance: DEXAMETHASONE
     Dates: start: 20130505, end: 20130510
  11. DEXAMETHASONE [Concomitant]
     Active Substance: DEXAMETHASONE
     Dates: start: 20130520, end: 20130521
  12. DEXAMETHASONE [Concomitant]
     Active Substance: DEXAMETHASONE
     Dates: start: 20130505
  13. DICLOFENAC [Concomitant]
     Active Substance: DICLOFENAC
     Dosage: 150 MG, EVERY 0.33 DAY
     Dates: start: 201301
  14. FUROSEMIDE [Concomitant]
     Active Substance: FUROSEMIDE
     Dates: start: 20130524, end: 20130528
  15. FUROSEMIDE [Concomitant]
     Active Substance: FUROSEMIDE
     Dates: start: 20130619, end: 20130710
  16. FUROSEMIDE [Concomitant]
     Active Substance: FUROSEMIDE
     Dosage: 20 MG, 1X/DAY
     Dates: start: 20130516, end: 20130519
  17. FUROSEMIDE [Concomitant]
     Active Substance: FUROSEMIDE
     Dates: start: 20130613, end: 20130618
  18. GELCLAIR (UNITED KINGDOM) [Concomitant]
     Route: 065
     Dates: start: 20130719
  19. GELCLAIR (UNITED KINGDOM) [Concomitant]
     Route: 065
     Dates: start: 20130516
  20. LOPERAMIDE [Concomitant]
     Active Substance: LOPERAMIDE
     Route: 065
     Dates: start: 20130523, end: 20130526
  21. LOPERAMIDE [Concomitant]
     Active Substance: LOPERAMIDE
     Dates: start: 20130729
  22. LYRICA [Concomitant]
     Active Substance: PREGABALIN
     Dosage: 300 MG, EVERY 0.5 DAY
  23. METOCLOPRAMIDE [Concomitant]
     Active Substance: METOCLOPRAMIDE
     Dosage: 20 MG, INDICATION: PRE-MEDICATION
     Dates: start: 20130516
  24. MORPHINE SULFATE [Concomitant]
     Active Substance: MORPHINE SULFATE
     Dosage: 160 MG, EVERY 0.5 DAY
     Dates: start: 201304
  25. ACETAMINOPHEN [Concomitant]
     Active Substance: ACETAMINOPHEN
     Dosage: 4 G, EVERY 0.25 DAY
     Dates: start: 201303
  26. PERTUZUMAB [Concomitant]
     Active Substance: PERTUZUMAB
     Indication: Breast cancer
     Dosage: 420 MG, EVERY 3 WEEKS
     Route: 042
     Dates: start: 20130711
  27. PERTUZUMAB [Concomitant]
     Active Substance: PERTUZUMAB
     Dosage: 2 MG
     Route: 042
     Dates: start: 20130729
  28. PERTUZUMAB [Concomitant]
     Active Substance: PERTUZUMAB
     Dosage: 420 MG, EVERY 3 WEEKS ON 06/JUN/2013, SHE RECEIVED THE DOSE OF PERTUZUMAB PRIOR TO THE?EVENT.
     Route: 042
     Dates: start: 20130516
  29. RANITIDINE [Concomitant]
     Active Substance: RANITIDINE
     Dates: start: 20130523
  30. MORPHINE [Concomitant]
     Active Substance: MORPHINE
     Dosage: 30 MG, 0.33 DAY
     Dates: start: 201304
  31. THYROXINE [Concomitant]
     Active Substance: LEVOTHYROXINE
     Dates: start: 200110, end: 20130621

REACTIONS (2)
  - Infusion related reaction [Recovered/Resolved]
  - Cellulitis [Recovered/Resolved]

NARRATIVE: CASE EVENT DATE: 20130516
